FAERS Safety Report 6071836-9 (Version None)
Quarter: 2009Q1

REPORT INFORMATION
  Report Type: 
  Country: None (occurrence: None)
  Receive Date: 20090210
  Receipt Date: 20090204
  Transmission Date: 20090719
  Serious: Yes (Other)
  Sender: FDA-Public Use
  Company Number: PHHY2008DE33028

PATIENT
  Sex: Female

DRUGS (7)
  1. RASILEZ [Suspect]
     Dosage: 150 MG/DAY
     Route: 048
     Dates: start: 20071116, end: 20080915
  2. RASILEZ [Suspect]
     Dosage: 300 MG/DAY
     Dates: start: 20080916, end: 20081208
  3. SORTIS ^GOEDECKE^ [Suspect]
     Indication: HYPERCHOLESTEROLAEMIA
     Dosage: 40MG/DAY
     Route: 048
     Dates: start: 20081116, end: 20081208
  4. METFORMIN [Concomitant]
     Indication: DIABETES MELLITUS
     Dosage: 1 DF, QD
     Route: 048
  5. CARMEN [Concomitant]
     Dosage: 1 DF, QD
     Route: 048
  6. METOPROLOL TARTRATE [Concomitant]
     Indication: HYPERTENSION
     Dosage: 0.5 DF, BID
     Route: 048
  7. RAMIPRIL [Concomitant]
     Indication: HYPERTENSION
     Dosage: 1 DF, QD
     Route: 048

REACTIONS (3)
  - ALANINE AMINOTRANSFERASE INCREASED [None]
  - GAMMA-GLUTAMYLTRANSFERASE INCREASED [None]
  - HEPATITIS [None]
